FAERS Safety Report 6148152-X (Version None)
Quarter: 2009Q1

REPORT INFORMATION
  Report Type: 
  Country: None (occurrence: None)
  Receive Date: 20090331
  Receipt Date: 20090306
  Transmission Date: 20090719
  Serious: No
  Sender: FDA-Public Use
  Company Number: WSDF_00798

PATIENT
  Sex: Female

DRUGS (2)
  1. WINRHO SDF [Suspect]
     Indication: IDIOPATHIC THROMBOCYTOPENIC PURPURA
     Dosage: ITP
  2. IMMUNE GLOBULIN NOS [Concomitant]

REACTIONS (2)
  - MALAISE [None]
  - WRONG DRUG ADMINISTERED [None]
